FAERS Safety Report 12780390 (Version 1)
Quarter: 2016Q3

REPORT INFORMATION
  Report Type: Spontaneous
  Country: US (occurrence: US)
  Receive Date: 20160922
  Receipt Date: 20160922
  Transmission Date: 20161109
  Serious: No
  Sender: FDA-Public Use
  Company Number: None

PATIENT
  Age: 42 Year
  Sex: Female

DRUGS (3)
  1. NITROFURANTIN [Concomitant]
     Active Substance: NITROFURANTOIN
  2. MULTIVITAMIN [Concomitant]
     Active Substance: VITAMINS
  3. COSENTYX [Suspect]
     Active Substance: SECUKINUMAB
     Indication: PSORIASIS
     Dosage: COSENTYX 300 MG - SUBCUTANEOUS - Q4WK
     Route: 058
     Dates: start: 201602, end: 201609

REACTIONS (2)
  - Pregnancy [None]
  - Therapy cessation [None]

NARRATIVE: CASE EVENT DATE: 201609
